FAERS Safety Report 8562514-2 (Version None)
Quarter: 2012Q3

REPORT INFORMATION
  Report Type: 
  Country: None (occurrence: None)
  Receive Date: 20120802
  Receipt Date: 20120706
  Transmission Date: 20120928
  Serious: No
  Sender: FDA-Public Use
  Company Number: US-AMGEN-USASP2012041933

PATIENT
  Age: 52 Year
  Sex: Female

DRUGS (2)
  1. ENBREL [Suspect]
     Indication: PSORIATIC ARTHROPATHY
  2. ENBREL [Suspect]
     Indication: RHEUMATOID ARTHRITIS
     Dosage: 50 MG, QWK

REACTIONS (7)
  - OROPHARYNGEAL PAIN [None]
  - VULVOVAGINAL PAIN [None]
  - PYREXIA [None]
  - PAIN [None]
  - FUNGAL INFECTION [None]
  - VULVOVAGINAL MYCOTIC INFECTION [None]
  - LYMPHADENOPATHY [None]
